FAERS Safety Report 18552567 (Version 1)
Quarter: 2020Q4

REPORT INFORMATION
  Report Type: Spontaneous
  Country: FR (occurrence: FR)
  Receive Date: 20201127
  Receipt Date: 20201127
  Transmission Date: 20210114
  Serious: Yes (Life-Threatening)
  Sender: FDA-Public Use
  Company Number: FR-TEVA-2020-FR-1852243

PATIENT
  Age: 44 Year
  Sex: Male

DRUGS (6)
  1. DIAZEPAM. [Suspect]
     Active Substance: DIAZEPAM
     Indication: BIPOLAR I DISORDER
     Dosage: 4 DOSAGE FORMS
     Route: 048
     Dates: start: 20201014, end: 20201024
  2. TERCIAN 25 MG, COMPRIME PELLICULE SECABLE [Suspect]
     Active Substance: CYAMEMAZINE
     Indication: BIPOLAR I DISORDER
     Dosage: 2 DOSAGE FORMS
     Route: 048
     Dates: start: 20201021, end: 20201024
  3. OLANZAPINE. [Suspect]
     Active Substance: OLANZAPINE
     Indication: BIPOLAR I DISORDER
     Dosage: 1 DOSAGE FORMS
     Route: 048
     Dates: start: 20201014, end: 20201024
  4. TERALITHE [Concomitant]
     Active Substance: LITHIUM CARBONATE
     Indication: BIPOLAR I DISORDER
     Dosage: UNIT DOSE: 3 DOSAGE FORMS
     Route: 048
     Dates: start: 2019, end: 20201024
  5. TERCIAN 25 MG, COMPRIME PELLICULE SECABLE [Suspect]
     Active Substance: CYAMEMAZINE
     Dosage: 1 DOSAGE FORMS
     Route: 048
     Dates: start: 20201021, end: 20201024
  6. DEPAKOTE [Concomitant]
     Active Substance: DIVALPROEX SODIUM
     Indication: BIPOLAR I DISORDER
     Dosage: 4 DOSAGE FORMS
     Route: 048
     Dates: start: 2019, end: 20201024

REACTIONS (5)
  - Acute kidney injury [Recovering/Resolving]
  - Intestinal obstruction [Recovered/Resolved]
  - Constipation [Recovered/Resolved]
  - Metabolic acidosis [Recovered/Resolved]
  - Hypovolaemic shock [Recovered/Resolved]

NARRATIVE: CASE EVENT DATE: 20201024
